FAERS Safety Report 8632088 (Version 3)
Quarter: 2012Q4

REPORT INFORMATION
  Report Type: 
  Country: NL (occurrence: NL)
  Receive Date: 20120625
  Receipt Date: 20121023
  Transmission Date: 20130627
  Serious: Yes (Death, Hospitalization)
  Sender: FDA-Public Use
  Company Number: PHHY2012NL053570

PATIENT
  Sex: Female
  Weight: 61 kg

DRUGS (5)
  1. ZOMETA [Suspect]
     Indication: METASTASES TO BONE
     Dosage: 4mg/100ml
  2. ZOMETA [Suspect]
     Indication: METASTATIC MALIGNANT MELANOMA
     Dosage: 4mg/100ml
     Dates: start: 20120412
  3. ZOMETA [Suspect]
     Dosage: 4mg/100ml
     Dates: start: 20120515
  4. ZOMETA [Suspect]
     Dosage: 4mg/100ml
     Dates: start: 20120611
  5. TEMOZOLOMIDE [Concomitant]

REACTIONS (2)
  - Neoplasm progression [Fatal]
  - Malignant neoplasm progression [Fatal]
